FAERS Safety Report 7569519-9 (Version None)
Quarter: 2011Q2

REPORT INFORMATION
  Report Type: 
  Country: None (occurrence: None)
  Receive Date: 20110624
  Receipt Date: 20110614
  Transmission Date: 20111010
  Serious: No
  Sender: FDA-Public Use
  Company Number: US-BIOGENIDEC-2011BI022063

PATIENT
  Sex: Male

DRUGS (3)
  1. AVONEX [Suspect]
     Indication: MULTIPLE SCLEROSIS
     Route: 030
     Dates: start: 20110301
  2. AVONEX [Suspect]
     Route: 030
     Dates: start: 20091015, end: 20101201
  3. AVONEX [Suspect]
     Route: 030
     Dates: start: 20061013

REACTIONS (2)
  - MULTIPLE SCLEROSIS RELAPSE [None]
  - BLINDNESS [None]
